FAERS Safety Report 4503372-2 (Version None)
Quarter: 2004Q4

REPORT INFORMATION
  Report Type: 
  Country: None (occurrence: None)
  Receive Date: 20041117
  Receipt Date: 20040902
  Transmission Date: 20050328
  Serious: Yes (Other)
  Sender: FDA-Public Use
  Company Number: US-GLAXOSMITHKLINE-A0524503A

PATIENT
  Age: 40 Year
  Sex: Female
  Weight: 134.1 kg

DRUGS (2)
  1. WELLBUTRIN [Suspect]
     Indication: DEPRESSION
     Dosage: 150MG PER DAY
     Route: 048
     Dates: start: 20040825, end: 20040829
  2. ZOLOFT [Concomitant]
     Indication: DEPRESSION
     Dosage: 150MG PER DAY
     Route: 048
     Dates: start: 20020608, end: 20040901

REACTIONS (3)
  - FEELING ABNORMAL [None]
  - HOMICIDAL IDEATION [None]
  - SUICIDAL IDEATION [None]
